FAERS Safety Report 24288032 (Version 7)
Quarter: 2025Q3

REPORT INFORMATION
  Report Type: Report from Study
  Country: US (occurrence: US)
  Receive Date: 20240905
  Receipt Date: 20250822
  Transmission Date: 20251021
  Serious: Yes (Hospitalization, Other)
  Sender: SUNOVION
  Company Number: US-SUMITOMO PHARMA SWITZERLAND GMBH-2024SPA001277

PATIENT
  Age: 76 Year
  Sex: Male

DRUGS (3)
  1. ORGOVYX [Suspect]
     Active Substance: RELUGOLIX
     Indication: Prostate cancer
     Route: 048
     Dates: start: 20230906, end: 20230906
  2. ORGOVYX [Suspect]
     Active Substance: RELUGOLIX
     Dosage: 120 MG, QD
     Route: 048
     Dates: start: 20230907
  3. IVERMECTIN [Concomitant]
     Active Substance: IVERMECTIN

REACTIONS (5)
  - Septic shock [Unknown]
  - Muscle spasms [Unknown]
  - Prostatic specific antigen increased [Unknown]
  - Pain [Unknown]
  - Depression [Unknown]
